FAERS Safety Report 14573101 (Version 3)
Quarter: 2018Q2

REPORT INFORMATION
  Report Type: Spontaneous
  Country: US (occurrence: US)
  Receive Date: 20180226
  Receipt Date: 20180418
  Transmission Date: 20180711
  Serious: No
  Sender: FDA-Public Use
  Company Number: US-PFIZER INC-2018076485

PATIENT
  Age: 68 Year
  Sex: Female
  Weight: 83 kg

DRUGS (12)
  1. LOSARTAN. [Concomitant]
     Active Substance: LOSARTAN
     Indication: BLOOD PRESSURE ABNORMAL
     Dosage: 25 MG, 2X/DAY (25MG TABLET ONCE IN THE MORNING AND ONCE IN THE EVENING)
     Dates: start: 20170729
  2. ASPIRIN. [Concomitant]
     Active Substance: ASPIRIN
     Indication: CARDIAC DISORDER
     Dosage: 81 MG, DAILY
     Route: 048
  3. VITAMIN D [Concomitant]
     Active Substance: CHOLECALCIFEROL
     Dosage: UNK
     Dates: start: 2006
  4. NOVOLOG MIX 70/30 [Concomitant]
     Active Substance: INSULIN ASPART
     Indication: DIABETES MELLITUS
     Dosage: 70 IU, DAILY (30 UNITS IN THE MORNING 10 UNITS AT LUNCH AND 30 UNITS IN EVENING BY INJECTION)
  5. NOVOLOG MIX 70/30 [Concomitant]
     Active Substance: INSULIN ASPART
     Dosage: UNK
     Dates: start: 200603
  6. COLESEVELAM HYDROCHLORIDE. [Concomitant]
     Active Substance: COLESEVELAM HYDROCHLORIDE
     Indication: BLOOD CHOLESTEROL ABNORMAL
     Dosage: 1875 MG, 2X/DAY (625MG TABLET 6 TABLETS DAILY BY MOUTH 3 IN AM AND 3 IN PM)
     Route: 048
  7. BIOTIN [Concomitant]
     Active Substance: BIOTIN
     Dosage: UNK
     Dates: start: 2016
  8. HYDROCHLOROTHIAZIDE. [Concomitant]
     Active Substance: HYDROCHLOROTHIAZIDE
     Indication: BLOOD PRESSURE ABNORMAL
     Dosage: 25 MG, 1X/DAY (IN THE MORNING)
     Route: 048
     Dates: start: 20170729
  9. IBRANCE [Suspect]
     Active Substance: PALBOCICLIB
     Indication: BREAST CANCER METASTATIC
     Dosage: 125 MG, CYCLIC (DAILY FOR 21 DAYS AND THEN OFF 7 DAYS)
     Route: 048
     Dates: start: 20170907
  10. NEUPOGEN [Concomitant]
     Active Substance: FILGRASTIM
     Dosage: UNK (RECEIVED THREE TO FOUR SHOTS OVER 7 MONTHS)
  11. IBRANCE [Suspect]
     Active Substance: PALBOCICLIB
     Dosage: 125 MG, 1X/DAY
     Dates: start: 20170907
  12. FISH OIL [Concomitant]
     Active Substance: FISH OIL
     Dosage: UNK
     Dates: start: 2006

REACTIONS (10)
  - Pleural effusion [Not Recovered/Not Resolved]
  - Coagulopathy [Not Recovered/Not Resolved]
  - Weight increased [Recovering/Resolving]
  - Hypoaesthesia [Unknown]
  - Nasopharyngitis [Unknown]
  - Neoplasm progression [Not Recovered/Not Resolved]
  - Epistaxis [Not Recovered/Not Resolved]
  - Cough [Recovered/Resolved]
  - Feeling cold [Recovering/Resolving]
  - Paraesthesia [Unknown]

NARRATIVE: CASE EVENT DATE: 2017
